FAERS Safety Report 7914130-0 (Version None)
Quarter: 2011Q4

REPORT INFORMATION
  Report Type: 
  Country: None (occurrence: None)
  Receive Date: 20111114
  Receipt Date: 20111114
  Transmission Date: 20120403
  Serious: Yes (Other)
  Sender: FDA-Public Use
  Company Number: None

PATIENT
  Age: 52 Year
  Sex: Male
  Weight: 58.95 kg

DRUGS (2)
  1. RIBAVIRIN [Suspect]
     Indication: HEPATITIS C
     Dosage: 600MG , 400MG AM + PM PO
     Route: 048
     Dates: start: 20110810
  2. PEGASYS [Suspect]
     Indication: HEPATITIS C
     Dosage: 180 MCG EVERY WEEK SQ
     Route: 058
     Dates: start: 20110510

REACTIONS (1)
  - DEPRESSION [None]
